FAERS Safety Report 14430681 (Version 2)
Quarter: 2018Q4

REPORT INFORMATION
  Report Type: Spontaneous
  Country: FR (occurrence: FR)
  Receive Date: 20180124
  Receipt Date: 20181026
  Transmission Date: 20190204
  Serious: Yes (Other)
  Sender: FDA-Public Use
  Company Number: FR-MERCK KGAA-2040672

PATIENT
  Age: 42 Year
  Sex: Female

DRUGS (1)
  1. EUTHYROX [Suspect]
     Active Substance: LEVOTHYROXINE SODIUM
     Indication: PRODUCT USED FOR UNKNOWN INDICATION
     Dates: start: 20170513

REACTIONS (24)
  - Weight increased [None]
  - Hypothyroidism [None]
  - Alopecia [None]
  - Anxiety [None]
  - Vertigo [None]
  - Depression [None]
  - Hot flush [None]
  - Blood thyroid stimulating hormone increased [None]
  - Mental disorder [None]
  - Headache [None]
  - Gastrointestinal disorder [None]
  - Fatigue [None]
  - Social avoidant behaviour [None]
  - Pain [None]
  - Constipation [None]
  - Insomnia [None]
  - Irritability [None]
  - Crying [None]
  - Phobia of driving [None]
  - Mental impairment [None]
  - Muscle spasms [None]
  - Asthenia [None]
  - Flatulence [None]
  - Disturbance in attention [None]

NARRATIVE: CASE EVENT DATE: 2017
